FAERS Safety Report 9018726 (Version 1)
Quarter: 2013Q1

REPORT INFORMATION
  Report Type: Spontaneous
  Country: US (occurrence: US)
  Receive Date: 20130118
  Receipt Date: 20130118
  Transmission Date: 20140127
  Serious: No
  Sender: FDA-Public Use
  Company Number: US-PFIZER INC-2013018985

PATIENT
  Age: 86 Year
  Sex: Female
  Weight: 43.08 kg

DRUGS (3)
  1. OXAPROZIN [Suspect]
     Indication: ARTHRITIS
     Dosage: 1200 MG, 1X/DAY
     Route: 048
  2. TRIAMTERENE/HYDROCHLOROTHIAZIDE [Concomitant]
     Indication: HYPERTENSION
     Dosage: UNK
  3. ARMOUR THYROID [Concomitant]
     Indication: HYPOTHYROIDISM
     Dosage: UNK

REACTIONS (3)
  - Arthritis [Unknown]
  - Drug ineffective [Unknown]
  - Body height decreased [Unknown]
